FAERS Safety Report 19773638 (Version 1)
Quarter: 2021Q3

REPORT INFORMATION
  Report Type: Report from Study
  Country: None (occurrence: US)
  Receive Date: 20210901
  Receipt Date: 20210901
  Transmission Date: 20211014
  Serious: Yes (Hospitalization)
  Sender: FDA-Public Use
  Company Number: US-ABBVIE-21K-163-3997353-00

PATIENT
  Sex: Female
  Weight: 56.75 kg

DRUGS (4)
  1. PREDNISONE. [Concomitant]
     Active Substance: PREDNISONE
     Indication: ARTHRITIS
  2. METHOTREXATE. [Concomitant]
     Active Substance: METHOTREXATE
     Indication: PRODUCT USED FOR UNKNOWN INDICATION
  3. HUMIRA [Suspect]
     Active Substance: ADALIMUMAB
     Indication: RHEUMATOID ARTHRITIS
     Dosage: CITRATE FREE
     Route: 058
  4. FOLIC ACID. [Concomitant]
     Active Substance: FOLIC ACID
     Indication: ALOPECIA

REACTIONS (7)
  - Gallbladder enlargement [Unknown]
  - Cholelithiasis [Unknown]
  - Hyperplastic cholecystopathy [Unknown]
  - Abdominal distension [Unknown]
  - Abdominal pain upper [Unknown]
  - Intra-abdominal fluid collection [Unknown]
  - Cholecystitis chronic [Unknown]
